FAERS Safety Report 19203897 (Version 2)
Quarter: 2021Q3

REPORT INFORMATION
  Report Type: Spontaneous
  Country: PL (occurrence: PL)
  Receive Date: 20210503
  Receipt Date: 20210719
  Transmission Date: 20211014
  Serious: Yes (Other)
  Sender: FDA-Public Use
  Company Number: PL-AMGEN-POLSP2021064416

PATIENT
  Age: 52 Year
  Sex: Male

DRUGS (12)
  1. VECTIBIX [Suspect]
     Active Substance: PANITUMUMAB
     Dosage: 6 MILLIGRAM/KILOGRAM, Q2WK EVERY 14 DAYS (DAY1)?450MG
     Route: 042
     Dates: start: 20200214, end: 20200505
  2. LEVOFOLIC [Concomitant]
     Active Substance: LEUCOVORIN
     Dosage: 100 MILLIGRAM/SQ. METER 22?HOUR INFUSION (DAY 1?DAY 2) ?191.2MG
     Route: 042
     Dates: start: 20200214
  3. VECTIBIX [Suspect]
     Active Substance: PANITUMUMAB
     Indication: RECTOSIGMOID CANCER
     Dosage: 6 MILLIGRAM/KILOGRAM, Q2WK EVERY 14 DAYS (DAY1)?453.72 MG
     Route: 042
     Dates: start: 20190810
  4. VECTIBIX [Suspect]
     Active Substance: PANITUMUMAB
     Dosage: 6 MILLIGRAM/KILOGRAM, Q2WK EVERY 14 DAYS (DAY1)?450MG
     Route: 042
     Dates: start: 20201228
  5. OXALIPLATIN. [Concomitant]
     Active Substance: OXALIPLATIN
     Indication: RECTOSIGMOID CANCER
     Dosage: 85 MILLIGRAM/SQ. METER (DAY1)?162.03 MG
     Route: 042
     Dates: start: 20190810
  6. LEVOFOLIC [Concomitant]
     Active Substance: LEUCOVORIN
     Indication: RECTOSIGMOID CANCER
     Dosage: 100 MILLIGRAM/SQ. METER 22?HOUR INFUSION (DAY 1?DAY 2) ?191.89 MG
     Route: 042
     Dates: start: 20190810
  7. 5?FU [FLUOROURACIL] [Concomitant]
     Active Substance: FLUOROURACIL
     Dosage: 400 MILLIGRAM/SQ. METER (DAY1?DAY2) ?732MG
     Route: 040
     Dates: start: 20200214
  8. 5?FU [FLUOROURACIL] [Concomitant]
     Active Substance: FLUOROURACIL
     Dosage: 600 MILLIGRAM/SQ. METER 22?HOUR INFUSION (DAY 1?DAY 2) ?1132MG
     Route: 042
     Dates: start: 20200214
  9. 5?FU [FLUOROURACIL] [Concomitant]
     Active Substance: FLUOROURACIL
     Dosage: 600 MILLIGRAM/SQ. METER 22?HOUR INFUSION (DAY 1?DAY 2) ?1157.67 MG
     Route: 042
     Dates: start: 20190810
  10. VECTIBIX [Suspect]
     Active Substance: PANITUMUMAB
     Dosage: 6 MILLIGRAM/KILOGRAM, Q2WK EVERY 14 DAYS (DAY1)?450MG
     Route: 042
     Dates: start: 20200731, end: 20201112
  11. 5?FU [FLUOROURACIL] [Concomitant]
     Active Substance: FLUOROURACIL
     Indication: RECTOSIGMOID CANCER
     Dosage: 400 MILLIGRAM/SQ. METER (DAY1?DAY2) ?756.76 MG
     Route: 040
     Dates: start: 20190810
  12. OXALIPLATIN. [Concomitant]
     Active Substance: OXALIPLATIN
     Dosage: 85 MILLIGRAM/SQ. METER (DAY1)?163MG
     Route: 042
     Dates: start: 20200214

REACTIONS (4)
  - COVID-19 [Recovered/Resolved]
  - Skin toxicity [Unknown]
  - Rash papular [Unknown]
  - Nail discolouration [Unknown]

NARRATIVE: CASE EVENT DATE: 2020
